FAERS Safety Report 10046763 (Version 1)
Quarter: 2014Q1

REPORT INFORMATION
  Report Type: Spontaneous
  Country: FR (occurrence: FR)
  Receive Date: 20140331
  Receipt Date: 20140331
  Transmission Date: 20141002
  Serious: Yes (Hospitalization)
  Sender: FDA-Public Use
  Company Number: PHHY2014FR036941

PATIENT
  Age: 85 Year
  Sex: Female

DRUGS (8)
  1. ACLASTA [Suspect]
     Indication: OSTEOPOROTIC FRACTURE
     Dosage: 1 DF, UNK
     Route: 042
     Dates: start: 20131226, end: 20131226
  2. OXYNORMORO [Suspect]
     Dosage: 1 DF, QD
     Route: 048
  3. DAFALGAN [Concomitant]
     Dosage: 2 DF, TID
     Route: 048
  4. MEDIATENSYL [Concomitant]
     Dosage: 1 DF, BID
     Route: 048
  5. PRITOR PLUS [Concomitant]
     Dosage: 1 DF, QD
     Route: 048
  6. LEVOTHYROX [Concomitant]
     Dosage: 1 DF, QD
     Route: 048
  7. TRANSIPEG//MACROGOL [Concomitant]
     Dosage: UNK UKN, UNK
     Route: 048
  8. LOVENOX [Concomitant]
     Dosage: UNK UKN, UNK
     Route: 058

REACTIONS (5)
  - Subileus [Recovered/Resolved]
  - Gastrointestinal motility disorder [Recovered/Resolved]
  - Nausea [Recovered/Resolved]
  - Vomiting [Recovered/Resolved]
  - Pyrexia [Recovered/Resolved]
